FAERS Safety Report 16636100 (Version 4)
Quarter: 2019Q4

REPORT INFORMATION
  Report Type: Spontaneous
  Country: US (occurrence: US)
  Receive Date: 20190726
  Receipt Date: 20191113
  Transmission Date: 20200122
  Serious: No
  Sender: FDA-Public Use
  Company Number: US-PFIZER INC-2019200552

PATIENT
  Age: 56 Year
  Sex: Female

DRUGS (22)
  1. DOCETAXEL. [Suspect]
     Active Substance: DOCETAXEL
     Dosage: 145 MG, CYCLIC (6 CYCLES, EVERY THREE WEEKS)
  2. TAXOTERE [Suspect]
     Active Substance: DOCETAXEL
     Dosage: 148 MG, CYCLIC (6 CYCLES, EVERY THREE WEEKS)
     Dates: end: 20140819
  3. PARAPLATIN [Concomitant]
     Active Substance: CARBOPLATIN
     Indication: CHEMOTHERAPY
     Dosage: UNK
  4. PROCHLORPERAZINE. [Concomitant]
     Active Substance: PROCHLORPERAZINE
     Dosage: UNK
  5. OMEPRAZOLE. [Concomitant]
     Active Substance: OMEPRAZOLE
     Dosage: UNK
  6. DOCETAXEL. [Suspect]
     Active Substance: DOCETAXEL
     Indication: BREAST CANCER FEMALE
     Dosage: 118 MG, CYCLIC (6 CYCLES, EVERY THREE WEEKS)
     Dates: start: 20140424
  7. DOCETAXEL. [Suspect]
     Active Substance: DOCETAXEL
     Dosage: 144 MG, CYCLIC (6 CYCLES, EVERY THREE WEEKS)
  8. DEXAMETHASONE. [Concomitant]
     Active Substance: DEXAMETHASONE
     Dosage: UNK
  9. DOCETAXEL. [Suspect]
     Active Substance: DOCETAXEL
     Dosage: 147 MG, CYCLIC (6 CYCLES, EVERY THREE WEEKS)
  10. LORAZEPAM. [Concomitant]
     Active Substance: LORAZEPAM
     Dosage: UNK
  11. TAXOTERE [Suspect]
     Active Substance: DOCETAXEL
     Indication: BREAST CANCER FEMALE
     Dosage: 118 MG, CYCLIC (6 CYCLES, EVERY THREE WEEKS)
     Dates: start: 20140424
  12. TAXOTERE [Suspect]
     Active Substance: DOCETAXEL
     Dosage: 145 MG, CYCLIC (6 CYCLES, EVERY THREE WEEKS)
  13. HERCEPTIN [Concomitant]
     Active Substance: TRASTUZUMAB
     Indication: CHEMOTHERAPY
     Dosage: UNK
  14. LETROZOLE. [Concomitant]
     Active Substance: LETROZOLE
     Indication: HORMONE THERAPY
     Dosage: UNK
     Dates: start: 2015
  15. CRESTOR [Concomitant]
     Active Substance: ROSUVASTATIN CALCIUM
     Dosage: UNK
     Dates: start: 201206, end: 2014
  16. ATORVASTATIN [Concomitant]
     Active Substance: ATORVASTATIN
     Dosage: UNK
  17. DOCETAXEL. [Suspect]
     Active Substance: DOCETAXEL
     Dosage: 148 MG, CYCLIC (6 CYCLES, EVERY THREE WEEKS)
     Dates: end: 20140819
  18. TAXOTERE [Suspect]
     Active Substance: DOCETAXEL
     Dosage: 144 MG, CYCLIC (6 CYCLES, EVERY THREE WEEKS)
  19. TAXOTERE [Suspect]
     Active Substance: DOCETAXEL
     Dosage: 147 MG, CYCLIC (6 CYCLES, EVERY THREE WEEKS)
  20. DIPHENHYDRAMINE. [Concomitant]
     Active Substance: DIPHENHYDRAMINE
     Dosage: UNK
     Dates: start: 2007
  21. CALCIUM [Concomitant]
     Active Substance: CALCIUM
     Dosage: UNK
  22. HYDROCODONE BITARTRATE AND ACETAMINOPHEN [Concomitant]
     Active Substance: ACETAMINOPHEN\HYDROCODONE BITARTRATE
     Dosage: UNK

REACTIONS (5)
  - Hair texture abnormal [Not Recovered/Not Resolved]
  - Hair colour changes [Not Recovered/Not Resolved]
  - Hair disorder [Not Recovered/Not Resolved]
  - Alopecia [Not Recovered/Not Resolved]
  - Madarosis [Not Recovered/Not Resolved]

NARRATIVE: CASE EVENT DATE: 201405
